APPROVED DRUG PRODUCT: ALPRAZOLAM
Active Ingredient: ALPRAZOLAM
Strength: 0.5MG
Dosage Form/Route: TABLET, EXTENDED RELEASE;ORAL
Application: A078469 | Product #001
Applicant: PH HEALTH LTD
Approved: Sep 29, 2011 | RLD: No | RS: No | Type: DISCN